FAERS Safety Report 11308502 (Version 2)
Quarter: 2015Q3

REPORT INFORMATION
  Report Type: Spontaneous
  Country: GB (occurrence: GB)
  Receive Date: 20150724
  Receipt Date: 20150806
  Transmission Date: 20151125
  Serious: Yes (Hospitalization)
  Sender: FDA-Public Use
  Company Number: GB-BIOGENIDEC-2015BI102236

PATIENT
  Age: 56 Year
  Sex: Female

DRUGS (3)
  1. TOLTERODINE [Concomitant]
     Active Substance: TOLTERODINE
  2. TYSABRI [Suspect]
     Active Substance: NATALIZUMAB
     Indication: PRODUCT USED FOR UNKNOWN INDICATION
     Route: 042
  3. TIZANIDINE. [Concomitant]
     Active Substance: TIZANIDINE

REACTIONS (7)
  - Ovarian germ cell teratoma benign [Unknown]
  - Hydronephrosis [Unknown]
  - Pleural effusion [Unknown]
  - Ascites [Unknown]
  - Ovarian mass [Unknown]
  - Ovarian disorder [Unknown]
  - Hiatus hernia [Unknown]

NARRATIVE: CASE EVENT DATE: 20150607
